FAERS Safety Report 9147805 (Version 3)
Quarter: 2013Q4

REPORT INFORMATION
  Report Type: Report from Study
  Country: CA (occurrence: CA)
  Receive Date: 20130307
  Receipt Date: 20131111
  Transmission Date: 20140711
  Serious: Yes (Hospitalization)
  Sender: FDA-Public Use
  Company Number: CA-ELI_LILLY_AND_COMPANY-CA201302009176

PATIENT
  Age: 67 Year
  Sex: Female

DRUGS (11)
  1. TERIPARATIDE [Suspect]
     Indication: OSTEOPOROSIS
     Dosage: 20 UG, QD
     Route: 058
     Dates: start: 20111216
  2. TYLENOL ARTHRITIS [Concomitant]
     Dosage: UNK, UNKNOWN
     Route: 065
  3. APO-LANSOPRAZOLE [Concomitant]
     Dosage: UNK, UNKNOWN
     Route: 065
  4. METHOTREXATE [Concomitant]
     Dosage: UNK, UNKNOWN
     Route: 065
  5. VITAMIN B12                        /00056201/ [Concomitant]
     Dosage: UNK, UNKNOWN
     Route: 065
  6. SIMPONI [Concomitant]
     Dosage: UNK, UNKNOWN
     Route: 065
  7. CALCIUM [Concomitant]
     Dosage: 2 DF, UNKNOWN
     Route: 065
  8. VITAMIN D                          /00107901/ [Concomitant]
     Dosage: UNK, UNKNOWN
     Route: 065
  9. CELEBREX [Concomitant]
     Dosage: UNK, UNKNOWN
     Route: 065
  10. HYDROXYCHLOROQUINE [Concomitant]
     Dosage: UNK, UNKNOWN
     Route: 065
  11. LEUCOVORIN                         /00566701/ [Concomitant]
     Dosage: UNK, UNKNOWN
     Route: 065

REACTIONS (13)
  - Movement disorder [Recovered/Resolved]
  - Nephrolithiasis [Not Recovered/Not Resolved]
  - Injection site haemorrhage [Not Recovered/Not Resolved]
  - Pain in extremity [Not Recovered/Not Resolved]
  - Local swelling [Not Recovered/Not Resolved]
  - Sinusitis [Not Recovered/Not Resolved]
  - Joint effusion [Not Recovered/Not Resolved]
  - Arthritis [Not Recovered/Not Resolved]
  - Weight bearing difficulty [Not Recovered/Not Resolved]
  - Mobility decreased [Not Recovered/Not Resolved]
  - Gait disturbance [Not Recovered/Not Resolved]
  - Injection site bruising [Not Recovered/Not Resolved]
  - Arthralgia [Not Recovered/Not Resolved]
